FAERS Safety Report 4273186-X (Version None)
Quarter: 2004Q1

REPORT INFORMATION
  Report Type: 
  Country: None (occurrence: None)
  Receive Date: 20040116
  Receipt Date: 20031118
  Transmission Date: 20041129
  Serious: Yes (Other)
  Sender: FDA-Public Use
  Company Number: PHBS2003BR12887

PATIENT
  Age: 33 Year
  Sex: Female
  Weight: 52 kg

DRUGS (6)
  1. TRILEPTAL [Suspect]
     Indication: NEUROPATHY
     Dosage: 0.5 TABLET/DAY
     Route: 048
     Dates: start: 20031112
  2. DOMPERIDONE [Concomitant]
     Indication: OESOPHAGEAL DISORDER
     Route: 048
     Dates: start: 20030901, end: 20031101
  3. BETASERC [Concomitant]
     Indication: LABYRINTHITIS
     Dosage: 16 MG/DAY
     Route: 048
     Dates: start: 20030701
  4. PARLODEL [Suspect]
     Indication: BLOOD PROLACTIN INCREASED
     Dosage: EVERY 3 DAYS
     Route: 048
  5. LANSOPRAZOLE [Concomitant]
     Indication: OESOPHAGEAL DISORDER
     Dosage: 15 MG/DAY
     Route: 048
  6. ANALGESIC LIQ [Concomitant]
     Indication: FIBROMYALGIA
     Route: 065

REACTIONS (6)
  - BLOOD PROLACTIN INCREASED [None]
  - EYE IRRITATION [None]
  - FIBROMYALGIA [None]
  - KERATOCONJUNCTIVITIS SICCA [None]
  - PYREXIA [None]
  - RENAL PAIN [None]
